FAERS Safety Report 20795573 (Version 1)
Quarter: 2022Q2

REPORT INFORMATION
  Report Type: Spontaneous
  Country: US (occurrence: None)
  Receive Date: 20220504
  Receipt Date: 20220504
  Transmission Date: 20220721
  Serious: No
  Sender: FDA-Public Use
  Company Number: None

PATIENT
  Sex: Male

DRUGS (1)
  1. TESTOSTERONE [Suspect]
     Active Substance: TESTOSTERONE
     Indication: Hormone replacement therapy
     Dosage: FREQUENCY : TWICE A WEEK;?
     Route: 030
     Dates: start: 20210114

REACTIONS (6)
  - Recalled product [None]
  - Injection site reaction [None]
  - Injection site swelling [None]
  - Injection site warmth [None]
  - Injection site pain [None]
  - Injection site induration [None]
